FAERS Safety Report 6814686-5 (Version None)
Quarter: 2010Q2

REPORT INFORMATION
  Report Type: 
  Country: None (occurrence: None)
  Receive Date: 20100629
  Receipt Date: 20100616
  Transmission Date: 20101027
  Serious: Yes (Life-Threatening, Hospitalization)
  Sender: FDA-Public Use
  Company Number: 7008191

PATIENT
  Age: 31 Year
  Sex: Female
  Weight: 58 kg

DRUGS (2)
  1. REBIF [Suspect]
     Indication: DRUG USE FOR UNKNOWN INDICATION
     Dosage: 1 IN 1 WK
     Dates: end: 20091215
  2. METHYLPREDNISOLONE [Suspect]
     Dates: start: 20091115, end: 20091115

REACTIONS (5)
  - ACUTE HEPATIC FAILURE [None]
  - COAGULOPATHY [None]
  - COMA [None]
  - ENCEPHALOPATHY [None]
  - LIVER TRANSPLANT [None]
